FAERS Safety Report 22635714 (Version 1)
Quarter: 2023Q2

REPORT INFORMATION
  Report Type: Spontaneous
  Country: US (occurrence: None)
  Receive Date: 20230620
  Receipt Date: 20230620
  Transmission Date: 20230721
  Serious: No
  Sender: FDA-Public Use
  Company Number: None

PATIENT
  Age: 69 Year
  Sex: Female
  Weight: 74.84 kg

DRUGS (1)
  1. SKYRIZI [Suspect]
     Active Substance: RISANKIZUMAB-RZAA
     Indication: Psoriasis
     Dosage: INJECT 150MG (PEN) SUBCUTANEOUSLY  AT WEEK 4 THEN EVERY 12 WEEKS AS DIRECTED
     Route: 058
     Dates: start: 202306

REACTIONS (3)
  - Cough [None]
  - Productive cough [None]
  - Increased upper airway secretion [None]
